FAERS Safety Report 4974074-3 (Version None)
Quarter: 2006Q2

REPORT INFORMATION
  Report Type: 
  Country: None (occurrence: None)
  Receive Date: 20060417
  Receipt Date: 20060315
  Transmission Date: 20061013
  Serious: Yes (Hospitalization, Other)
  Sender: FDA-Public Use
  Company Number: BE-GLAXOSMITHKLINE-B0416725A

PATIENT
  Age: 48 Year
  Sex: Male
  Weight: 95 kg

DRUGS (2)
  1. ZINNAT [Suspect]
     Indication: SINUSITIS
     Dosage: 500MG THREE TIMES PER DAY
     Route: 048
     Dates: start: 20041215, end: 20041217
  2. DAKAR [Concomitant]
     Indication: PROPHYLAXIS
     Dosage: 30MG PER DAY
     Route: 048
     Dates: start: 19990902

REACTIONS (11)
  - ANAPHYLACTIC REACTION [None]
  - CIRCULATORY COLLAPSE [None]
  - DIARRHOEA [None]
  - FACE OEDEMA [None]
  - FRACTURE [None]
  - HYPOTENSION [None]
  - NAUSEA [None]
  - OEDEMA MUCOSAL [None]
  - RASH GENERALISED [None]
  - SYNCOPE [None]
  - VOMITING [None]
